FAERS Safety Report 8102023-8 (Version None)
Quarter: 2012Q1

REPORT INFORMATION
  Report Type: 
  Country: None (occurrence: None)
  Receive Date: 20120131
  Receipt Date: 20120127
  Transmission Date: 20120608
  Serious: Yes (Death, Other)
  Sender: FDA-Public Use
  Company Number: US-ASTRAZENECA-2012SE06077

PATIENT
  Age: 61 Year
  Sex: Male
  Weight: 88.5 kg

DRUGS (2)
  1. MEDICATIONS [Concomitant]
  2. SEROQUEL [Suspect]
     Route: 048

REACTIONS (2)
  - MENINGITIS CRYPTOCOCCAL [None]
  - CARDIAC FAILURE CONGESTIVE [None]
